FAERS Safety Report 8571319-8 (Version None)
Quarter: 2012Q3

REPORT INFORMATION
  Report Type: 
  Country: None (occurrence: None)
  Receive Date: 20120806
  Receipt Date: 20120725
  Transmission Date: 20120928
  Serious: Yes (Hospitalization, Other)
  Sender: FDA-Public Use
  Company Number: US-BAYER-2011-004032

PATIENT
  Age: 42 Year
  Sex: Female

DRUGS (15)
  1. LYRICA [Concomitant]
     Indication: PARAESTHESIA
     Dosage: 150 MG, UNK
     Route: 048
     Dates: start: 20060101
  2. CEPHALEXIN [Concomitant]
     Dosage: 500 MG, UNK
     Dates: start: 20081224
  3. YAZ [Suspect]
     Indication: CONTRACEPTION
     Dosage: UNK
     Dates: start: 20070713, end: 20090721
  4. FLEXERIL [Concomitant]
     Dosage: 20 MG, QD
     Route: 048
  5. HYDROMORPHONE HYDROCHLORIDE [Concomitant]
     Dosage: 2 MG, UNK
     Route: 048
  6. IMITREX [Concomitant]
     Indication: MIGRAINE
     Dosage: UNK
     Dates: start: 20020101, end: 20090101
  7. MOTRIN [Concomitant]
     Indication: PAIN
     Dosage: 200 MG, UNK
     Route: 048
  8. AVAPRO [Concomitant]
     Indication: HYPERTENSION
     Dosage: 300 MG, UNK
     Route: 048
     Dates: start: 20080101
  9. SUMATRIPTAN SUCCINATE [Concomitant]
     Dosage: 100 MG, UNK
     Route: 048
  10. ZYRTEC [Concomitant]
     Route: 048
  11. METHYLPREDNISOLONE [Concomitant]
     Dosage: 4 MG, UNK
     Route: 048
     Dates: start: 20091202
  12. YAZ [Suspect]
     Indication: PREMENSTRUAL SYNDROME
     Dosage: UNK
     Dates: start: 20070713, end: 20090721
  13. YAZ [Suspect]
     Indication: LIBIDO DECREASED
  14. AUGMENTIN '500' [Concomitant]
     Dosage: 125 MG, UNK
     Dates: start: 20090106
  15. NITROFURANT MACRO [Concomitant]
     Dosage: 100 MG, UNK
     Route: 048

REACTIONS (9)
  - DEEP VEIN THROMBOSIS [None]
  - ANHEDONIA [None]
  - EMOTIONAL DISTRESS [None]
  - PAIN IN EXTREMITY [None]
  - GENERAL PHYSICAL HEALTH DETERIORATION [None]
  - ASTHENIA [None]
  - INJURY [None]
  - ANXIETY [None]
  - CHOLELITHIASIS [None]
